FAERS Safety Report 8918171 (Version 5)
Quarter: 2013Q4

REPORT INFORMATION
  Report Type: Spontaneous
  Country: US (occurrence: US)
  Receive Date: 20121120
  Receipt Date: 20131108
  Transmission Date: 20140711
  Serious: Yes (Hospitalization, Other)
  Sender: FDA-Public Use
  Company Number: US-009507513-1211USA007598

PATIENT
  Sex: Female
  Weight: 54 kg

DRUGS (13)
  1. FOSAMAX [Suspect]
     Indication: OSTEOPOROSIS
     Dosage: 70 MG, QW
     Route: 048
     Dates: start: 200303, end: 200904
  2. PREDNISONE [Concomitant]
     Indication: ARTHRITIS
     Dosage: 1/2 TABLET
     Dates: start: 2002, end: 2012
  3. ESTROGENS, CONJUGATED [Concomitant]
     Dosage: 1/2 TABLET
     Dates: start: 1970, end: 2010
  4. FEXOFENADINE HYDROCHLORIDE [Concomitant]
     Indication: HYPERSENSITIVITY
     Dosage: UNK
     Dates: start: 1980
  5. HYDROCODONE [Concomitant]
     Indication: PAIN
     Dosage: UNK
     Dates: start: 2002
  6. METHOTREXATE [Concomitant]
     Indication: ARTHRITIS
     Dosage: 2.5 MG, 4 WEEK
     Dates: start: 2002
  7. CALCIUM (UNSPECIFIED) [Concomitant]
     Indication: OSTEOPOROSIS
  8. VITAMIN D (UNSPECIFIED) [Concomitant]
     Indication: OSTEOPOROSIS
  9. FORTEO [Concomitant]
     Indication: OSTEOPOROSIS
  10. CHOLECALCIFEROL [Concomitant]
     Dosage: 2000 IU, QD
     Dates: start: 2008
  11. CYANOCOBALAMIN [Concomitant]
     Dosage: UNK
     Dates: start: 2008
  12. ASCORBIC ACID [Concomitant]
     Dosage: 500 MG, QD
     Dates: start: 2008
  13. VITAMIN E [Concomitant]
     Dosage: 400 IU, QD
     Dates: start: 2008

REACTIONS (50)
  - Femur fracture [Unknown]
  - Intramedullary rod insertion [Unknown]
  - Biopsy [Unknown]
  - Fibula fracture [Unknown]
  - Deafness [Unknown]
  - Knee arthroplasty [Unknown]
  - Vitamin D deficiency [Unknown]
  - Calcium deficiency [Unknown]
  - Hypertonic bladder [Unknown]
  - Fungal infection [Unknown]
  - Medical device removal [Unknown]
  - Tenolysis [Unknown]
  - Carpal tunnel decompression [Unknown]
  - Tendon sheath incision [Unknown]
  - Bladder neck suspension [Unknown]
  - Meniscus removal [Unknown]
  - Diverticulitis [Unknown]
  - Lumbar vertebral fracture [Unknown]
  - Faeces discoloured [Unknown]
  - Acute sinusitis [Unknown]
  - Carpal tunnel syndrome [Unknown]
  - Anaemia [Unknown]
  - Iron deficiency [Unknown]
  - Chronic obstructive pulmonary disease [Not Recovered/Not Resolved]
  - Bronchitis [Unknown]
  - Adhesion [Unknown]
  - Chronic sinusitis [Not Recovered/Not Resolved]
  - Oral candidiasis [Unknown]
  - Depression [Unknown]
  - Rotator cuff syndrome [Unknown]
  - Aortic arteriosclerosis [Unknown]
  - Osteopenia [Unknown]
  - Incontinence [Unknown]
  - Arthropathy [Unknown]
  - Rotator cuff syndrome [Unknown]
  - Cataract [Unknown]
  - Osteoarthritis [Unknown]
  - Muscle strain [Unknown]
  - Local swelling [Unknown]
  - Local swelling [Unknown]
  - Local swelling [Unknown]
  - Musculoskeletal discomfort [Recovered/Resolved]
  - Pain in extremity [Unknown]
  - Flatulence [Unknown]
  - Arthralgia [Not Recovered/Not Resolved]
  - Dysphagia [Unknown]
  - Abdominal pain [Unknown]
  - Oesophageal stenosis [Unknown]
  - Gastrooesophageal reflux disease [Unknown]
  - Joint swelling [Unknown]
